FAERS Safety Report 12313603 (Version 1)
Quarter: 2016Q2

REPORT INFORMATION
  Report Type: Spontaneous
  Country: US (occurrence: None)
  Receive Date: 20160427
  Receipt Date: 20160427
  Transmission Date: 20160815
  Serious: Yes (Life-Threatening)
  Sender: FDA-Public Use
  Company Number: None

PATIENT
  Age: 56 Year
  Sex: Male
  Weight: 113.4 kg

DRUGS (8)
  1. NAMENDA XR [Concomitant]
     Active Substance: MEMANTINE HYDROCHLORIDE
  2. OMEGA 3,6,9 [Concomitant]
  3. COQ10 [Concomitant]
     Active Substance: UBIDECARENONE
  4. FLUTICASONE [Concomitant]
     Active Substance: FLUTICASONE\FLUTICASONE PROPIONATE
  5. LOSARTAN. [Concomitant]
     Active Substance: LOSARTAN
  6. ASPRIN [Concomitant]
     Active Substance: ASPIRIN
  7. ATENOLOL. [Concomitant]
     Active Substance: ATENOLOL
  8. ATORVASTAIN 20 MG TABLETS [Suspect]
     Active Substance: ATORVASTATIN
     Indication: BLOOD CHOLESTEROL ABNORMAL
     Dosage: 1 TAB IN PM. WITH DR^S OK I WAS TAKING ? TAB. 10MG PM 10MG AM I WAS STILL HAVING A BAD REACTION EVEN ON 10MG BY MOUTH CUTTING TAB IN ?
     Route: 048
     Dates: start: 20160321, end: 20160409

REACTIONS (6)
  - Dizziness [None]
  - Impaired driving ability [None]
  - Blood pressure increased [None]
  - Heart rate increased [None]
  - Aggression [None]
  - Anger [None]

NARRATIVE: CASE EVENT DATE: 20160408
